FAERS Safety Report 9319906 (Version 1)
Quarter: 2013Q2

REPORT INFORMATION
  Report Type: Report from Study
  Country: DE (occurrence: DE)
  Receive Date: 20130530
  Receipt Date: 20130530
  Transmission Date: 20140414
  Serious: Yes (Hospitalization)
  Sender: FDA-Public Use
  Company Number: PHHY2012DE128135

PATIENT
  Sex: Female

DRUGS (1)
  1. EXELON [Suspect]
     Dates: start: 2012, end: 2012

REACTIONS (6)
  - Circulatory collapse [Recovered/Resolved]
  - Blood pressure increased [Recovered/Resolved]
  - Stress [Unknown]
  - Drug intolerance [Unknown]
  - Nausea [Recovered/Resolved]
  - Diarrhoea [Recovered/Resolved]
